FAERS Safety Report 7459919-X (Version None)
Quarter: 2011Q2

REPORT INFORMATION
  Report Type: 
  Country: None (occurrence: None)
  Receive Date: 20110427
  Receipt Date: 20110421
  Transmission Date: 20111010
  Serious: No
  Sender: FDA-Public Use
  Company Number: DSJ-2011-07009

PATIENT
  Age: 74 Year
  Sex: Female

DRUGS (2)
  1. CALBLOCK (AZELNIDIPINE) (TABLET) (AZELNIDIPINE) [Suspect]
     Indication: PRODUCT USED FOR UNKNOWN INDICATION
     Dosage: PER ORAL
     Route: 048
  2. OLMESARTAN MEDOXOMIL [Suspect]
     Indication: HYPERTENSION
     Dosage: PER ORAL
     Route: 048

REACTIONS (1)
  - SEPSIS [None]
